FAERS Safety Report 9185106 (Version 1)
Quarter: 2013Q1

REPORT INFORMATION
  Report Type: Spontaneous
  Country: TR (occurrence: TR)
  Receive Date: 20130325
  Receipt Date: 20130325
  Transmission Date: 20140127
  Serious: Yes (Death, Hospitalization)
  Sender: FDA-Public Use
  Company Number: PHHY2013TR027986

PATIENT
  Age: 80 Year
  Sex: Male

DRUGS (4)
  1. AMIODARONE [Suspect]
     Indication: ACUTE MYOCARDIAL INFARCTION
     Dosage: 300 MG, UNK
     Route: 042
  2. AMIODARONE [Suspect]
     Indication: VENTRICULAR TACHYCARDIA
  3. AMIODARONE [Suspect]
     Dosage: 900 MG, PER DAY
  4. AMIODARONE [Suspect]
     Dosage: 400 MG, PER DAY

REACTIONS (13)
  - Acute hepatic failure [Fatal]
  - Jaundice [Fatal]
  - Ocular icterus [Fatal]
  - Disorientation [Fatal]
  - Nausea [Fatal]
  - Vomiting [Fatal]
  - Cardio-respiratory arrest [Fatal]
  - Renal failure acute [Unknown]
  - Atrial fibrillation [Unknown]
  - Palpitations [Unknown]
  - Bundle branch block left [Unknown]
  - Dyspnoea [Unknown]
  - Rales [Unknown]
